FAERS Safety Report 5325198-2 (Version None)
Quarter: 2007Q2

REPORT INFORMATION
  Report Type: 
  Country: None (occurrence: None)
  Receive Date: 20070515
  Receipt Date: 20070510
  Transmission Date: 20071010
  Serious: Yes (Death, Hospitalization)
  Sender: FDA-Public Use
  Company Number: B0470639A

PATIENT
  Age: 22 Year
  Sex: Male

DRUGS (8)
  1. FORTUM [Suspect]
     Route: 042
     Dates: start: 20070130, end: 20070206
  2. DEPAKENE [Suspect]
     Route: 065
     Dates: start: 20070111
  3. DI-HYDAN [Suspect]
     Route: 065
     Dates: start: 20070111, end: 20070208
  4. IMOVANE [Suspect]
     Route: 065
     Dates: start: 20070127, end: 20070207
  5. LOVENOX [Suspect]
     Route: 065
     Dates: start: 20070118
  6. FORLAX [Suspect]
     Route: 065
     Dates: start: 20070128, end: 20070207
  7. TIENAM [Concomitant]
     Dates: start: 20070111, end: 20070112
  8. VANCOMYCIN [Concomitant]
     Dates: start: 20070111, end: 20070112

REACTIONS (3)
  - MUCOUS MEMBRANE DISORDER [None]
  - TOXIC EPIDERMAL NECROLYSIS [None]
  - TOXIC SKIN ERUPTION [None]
